FAERS Safety Report 20561893 (Version 1)
Quarter: 2022Q1

REPORT INFORMATION
  Report Type: Spontaneous
  Country: US (occurrence: None)
  Receive Date: 20220306
  Receipt Date: 20220306
  Transmission Date: 20220423
  Serious: No
  Sender: FDA-Public Use
  Company Number: None

PATIENT
  Age: 70 Year
  Sex: Female
  Weight: 54 kg

DRUGS (5)
  1. QULIPTA [Suspect]
     Active Substance: ATOGEPANT
     Indication: Migraine
     Dosage: FREQUENCY : DAILY;?
     Route: 048
     Dates: start: 20220202, end: 20220302
  2. IMITREX [Concomitant]
  3. VIIBRYD [Concomitant]
     Active Substance: VILAZODONE HYDROCHLORIDE
  4. VITAMIN D NOS [Concomitant]
     Active Substance: VITAMIN D NOS
  5. QUINOL [Concomitant]

REACTIONS (6)
  - Fatigue [None]
  - Dizziness [None]
  - Feeling abnormal [None]
  - Constipation [None]
  - Dyspepsia [None]
  - Anxiety [None]

NARRATIVE: CASE EVENT DATE: 20220224
